APPROVED DRUG PRODUCT: EPINASTINE HYDROCHLORIDE
Active Ingredient: EPINASTINE HYDROCHLORIDE
Strength: 0.05%
Dosage Form/Route: SOLUTION/DROPS;OPHTHALMIC
Application: A090919 | Product #001 | TE Code: AT
Applicant: APOTEX INC
Approved: Oct 31, 2011 | RLD: No | RS: No | Type: RX